FAERS Safety Report 9023536 (Version 1)
Quarter: 2013Q1

REPORT INFORMATION
  Report Type: Spontaneous
  Country: MX (occurrence: MX)
  Receive Date: 20130121
  Receipt Date: 20130121
  Transmission Date: 20140127
  Serious: Yes (Other)
  Sender: FDA-Public Use
  Company Number: PHHY2013MX005341

PATIENT
  Age: 75 Year
  Sex: Male

DRUGS (7)
  1. RASILEZ [Suspect]
     Indication: HYPERTENSION
     Dosage: 300 MG, DAILY
     Route: 048
     Dates: start: 200801, end: 201212
  2. MICARDIS [Concomitant]
     Indication: BLOOD PRESSURE
     Dosage: 1.5 DF, DAILY
  3. ASPIRIN PROTECT [Concomitant]
     Indication: ANTICOAGULANT THERAPY
     Dosage: 1 DF, DAILY
  4. ASPIRIN PROTECT [Concomitant]
     Indication: CARDIOVASCULAR EVENT PROPHYLAXIS
  5. GLIBENCLAMIDE [Concomitant]
     Indication: DIABETES MELLITUS
     Dosage: 3 DF, DAILY
     Dates: start: 2007
  6. EUGLUCON [Concomitant]
     Indication: DIABETES MELLITUS
     Dosage: 3 DF, DAILY
     Dates: start: 2009
  7. JANUMET [Concomitant]
     Indication: DIABETES MELLITUS
     Dosage: 3 DF, DAILY
     Dates: start: 2009

REACTIONS (4)
  - Diabetic glaucoma [Unknown]
  - Blindness [Unknown]
  - Chondropathy [Unknown]
  - Haemodilution [Recovered/Resolved]
